FAERS Safety Report 21179953 (Version 1)
Quarter: 2022Q3

REPORT INFORMATION
  Report Type: Spontaneous
  Country: US (occurrence: None)
  Receive Date: 20220805
  Receipt Date: 20220805
  Transmission Date: 20221027
  Serious: No
  Sender: FDA-Public Use
  Company Number: None

PATIENT
  Age: 68 Year
  Sex: Female
  Weight: 65.7 kg

DRUGS (1)
  1. TACROLIMUS [Suspect]
     Active Substance: TACROLIMUS
     Indication: Lichen sclerosus
     Dosage: FREQUENCY : TWICE A DAY;?
     Route: 061
     Dates: start: 20220727, end: 20220728

REACTIONS (1)
  - Vulvovaginal burning sensation [None]

NARRATIVE: CASE EVENT DATE: 20220728
